FAERS Safety Report 16543807 (Version 1)
Quarter: 2019Q3

REPORT INFORMATION
  Report Type: Spontaneous
  Country: US (occurrence: US)
  Receive Date: 20190527
  Receipt Date: 20190527
  Transmission Date: 20191004
  Serious: No
  Sender: FDA-Public Use
  Company Number: None

PATIENT
  Age: 65 Year
  Sex: Female

DRUGS (1)
  1. CAPECITABINE TAB 1500 MG [Suspect]
     Active Substance: CAPECITABINE
     Dates: start: 201703

REACTIONS (1)
  - Weight increased [None]

NARRATIVE: CASE EVENT DATE: 20190527
